FAERS Safety Report 10347844 (Version 1)
Quarter: 2014Q3

REPORT INFORMATION
  Report Type: Spontaneous
  Country: US (occurrence: None)
  Receive Date: 20140728
  Receipt Date: 20140728
  Transmission Date: 20150326
  Serious: Yes (Other)
  Sender: FDA-Public Use
  Company Number: None

PATIENT
  Age: 42 Year
  Sex: Female

DRUGS (1)
  1. OMEPRAZOLE ZYDUS 80 MG ZA-10 ON CAPSULE [Suspect]
     Active Substance: OMEPRAZOLE
     Indication: DYSPEPSIA
     Dosage: THERAPY DATES?7/24, 7/26
     Route: 048
     Dates: start: 20140724, end: 20140726

REACTIONS (3)
  - Throat irritation [None]
  - Urticaria [None]
  - Wheezing [None]

NARRATIVE: CASE EVENT DATE: 20140726
